FAERS Safety Report 16230134 (Version 1)
Quarter: 2019Q2

REPORT INFORMATION
  Report Type: Spontaneous
  Country: DE (occurrence: DE)
  Receive Date: 20190423
  Receipt Date: 20190423
  Transmission Date: 20190711
  Serious: Yes (Hospitalization, Other)
  Sender: FDA-Public Use
  Company Number: DE-NAPPMUNDI-GBR-2019-0066025

PATIENT
  Sex: Male
  Weight: 95 kg

DRUGS (4)
  1. PANTOPRAZOL [Concomitant]
     Active Substance: PANTOPRAZOLE SODIUM
     Indication: GASTRITIS
     Dosage: 40 MG, ONCE DAILY (1-0-0)
     Route: 065
  2. AMLODIPIN                          /00972401/ [Concomitant]
     Active Substance: AMLODIPINE BESYLATE
     Indication: PRODUCT USED FOR UNKNOWN INDICATION
     Dosage: 5 MG, DAILY
     Route: 065
  3. OXYCODONE HYDROCHLORIDE. [Suspect]
     Active Substance: OXYCODONE HYDROCHLORIDE
     Indication: TUMOUR PAIN
     Dosage: UNK
     Route: 048
     Dates: start: 201811
  4. METAMIZOL                          /06276702/ [Concomitant]
     Active Substance: METAMIZOLE
     Indication: PAIN
     Dosage: 1 G, Q6H
     Route: 065

REACTIONS (13)
  - Folate deficiency [Unknown]
  - Weight decreased [Unknown]
  - Peripheral sensory neuropathy [Unknown]
  - Motor neurone disease [Unknown]
  - Syncope [Recovered/Resolved]
  - Dysphagia [Recovering/Resolving]
  - Hypotonia [Recovering/Resolving]
  - Prostatic specific antigen increased [Unknown]
  - Tongue disorder [Recovering/Resolving]
  - Pain [Unknown]
  - Sleep apnoea syndrome [Unknown]
  - Dysarthria [Recovering/Resolving]
  - Orthostatic intolerance [Unknown]

NARRATIVE: CASE EVENT DATE: 201811
